FAERS Safety Report 13207345 (Version 2)
Quarter: 2017Q2

REPORT INFORMATION
  Report Type: Spontaneous
  Country: US (occurrence: US)
  Receive Date: 20170209
  Receipt Date: 20170503
  Transmission Date: 20170830
  Serious: No
  Sender: FDA-Public Use
  Company Number: US-SA-2017SA000101

PATIENT
  Age: 71 Year
  Sex: Male
  Weight: 76.2 kg

DRUGS (25)
  1. ASPIRIN. [Concomitant]
     Active Substance: ASPIRIN
     Dosage: ENTERED ON 23-NOV-2016
     Route: 048
  2. NITROGLYCERIN. [Concomitant]
     Active Substance: NITROGLYCERIN
     Route: 060
  3. SENNA LAXATIVE [Concomitant]
     Active Substance: SENNOSIDES
     Dosage: FILLED ON 20-MAY-2016
     Route: 048
  4. VALSARTAN. [Concomitant]
     Active Substance: VALSARTAN
     Dosage: FILLED 27-DEC-2016; 160 MG
     Route: 048
  5. ALIROCUMAB PREFILLED PEN [Concomitant]
     Active Substance: ALIROCUMAB
     Dates: end: 201612
  6. ATENOLOL. [Concomitant]
     Active Substance: ATENOLOL
     Dosage: FILLED ON 16-OCT-2016
     Route: 048
  7. TAMSULOSIN [Concomitant]
     Active Substance: TAMSULOSIN
     Dosage: FILLED ON 25-DEC-2016
     Route: 048
  8. AMLODIPINE [Concomitant]
     Active Substance: AMLODIPINE BESYLATE
  9. FLUTICASONE. [Concomitant]
     Active Substance: FLUTICASONE
     Dosage: ACTUATION NASAL SPRAY, SUSPENSION, 1 SPRAY IN EACH NOSTRIL ONCE DAILY; FILEED ON 15-DEC-2016
     Route: 045
  10. FOLIC ACID. [Concomitant]
     Active Substance: FOLIC ACID
     Dosage: FILLED ON 11-FEB-2016
     Route: 048
  11. METOPROLOL SUCCINATE. [Concomitant]
     Active Substance: METOPROLOL SUCCINATE
     Dosage: ER 50 MG TABLET, EXTENDED RELEASE 24 HR; 1.5 BY MOUTH DAILY; FILLED ON 8-FEB-2016
  12. VITAMIN B1 [Concomitant]
     Active Substance: THIAMINE HYDROCHLORIDE
     Dosage: FILLED ON 09-FEB-2014
     Route: 048
  13. PROAIR HFA 108 MCG/ACT AERS [Concomitant]
     Dosage: 108 (90 BASE) MCG/ACT AERS; FILLED ON 26-JUL-2016
  14. CITALOPRAM [Concomitant]
     Active Substance: CITALOPRAM HYDROBROMIDE
     Dosage: FILLED ON 22-DEC-2014
     Route: 048
  15. CLOPIDOGREL [Concomitant]
     Active Substance: CLOPIDOGREL BISULFATE
     Dosage: PRESCRIBED ON 17-OCT-2016, FOR 90 DAYS
     Route: 048
  16. FINASTERIDE. [Concomitant]
     Active Substance: FINASTERIDE
     Dosage: 5 MG TABLET; FILLED ON 30-OCT-2016
     Route: 048
  17. OXYBUTYNIN CHLORIDE. [Concomitant]
     Active Substance: OXYBUTYNIN CHLORIDE
     Dosage: FILLED 11-JAN-2016
  18. PRALUENT [Suspect]
     Active Substance: ALIROCUMAB
     Indication: TYPE IIA HYPERLIPIDAEMIA
     Route: 058
     Dates: start: 20160414
  19. HYDROCHLOROTHIAZIDE. [Concomitant]
     Active Substance: HYDROCHLOROTHIAZIDE
     Dosage: 1 CAPSULE VERU DAY FOR 90 DAYS; FILLED ON 26-DEC-2016
     Route: 048
  20. LORATADINE. [Concomitant]
     Active Substance: LORATADINE
     Dosage: DAILY IF NEEDED FOR ITCHING; FILLED ON 22-JAN-2016
     Route: 048
  21. RANITIDINE. [Concomitant]
     Active Substance: RANITIDINE
     Dosage: FILLED ON 26-DEC-2016
     Route: 048
  22. VITAMIN D3 [Concomitant]
     Active Substance: CHOLECALCIFEROL
     Dosage: ENTERED ON 20-NOV-2013
  23. PRALUENT [Suspect]
     Active Substance: ALIROCUMAB
     Indication: TYPE IIA HYPERLIPIDAEMIA
     Route: 058
     Dates: start: 20160721, end: 20161208
  24. OMEPRAZOLE. [Concomitant]
     Active Substance: OMEPRAZOLE
     Dosage: DELAYED RELEASE; FILLED ON 16-DEC-2016
  25. TRADJENTA [Concomitant]
     Active Substance: LINAGLIPTIN
     Dosage: 1 TAB EVERY DAY BY ORAL ROUTE FOR 30 DAYS; FILLED ON 27-DEC-2016
     Route: 048

REACTIONS (1)
  - Drug ineffective [Unknown]

NARRATIVE: CASE EVENT DATE: 2016
